FAERS Safety Report 4523272-1 (Version None)
Quarter: 2004Q4

REPORT INFORMATION
  Report Type: 
  Country: None (occurrence: None)
  Receive Date: 20041202
  Receipt Date: 20041027
  Transmission Date: 20050328
  Serious: Yes (Disabling)
  Sender: FDA-Public Use
  Company Number: 200410548BYL

PATIENT
  Age: 21 Month
  Sex: Male
  Weight: 11.5 kg

DRUGS (5)
  1. GAMIMUNE N 5% [Suspect]
     Indication: KAWASAKI'S DISEASE
     Dosage: 10.0 G, TOTAL DAILY, INTRAVENOUS
     Route: 042
     Dates: start: 20040723
  2. GAMIMUNE N 5% [Suspect]
     Indication: KAWASAKI'S DISEASE
     Dosage: 12.5 G, TOTAL DAILY, INTRAVENOUS
     Route: 042
     Dates: start: 20040724, end: 20040725
  3. ASPIRIN [Concomitant]
  4. CEFOTIAM HYDROCHLORIDE [Concomitant]
  5. VEEN-3G [Concomitant]

REACTIONS (7)
  - DEVICE MALFUNCTION [None]
  - INJECTION SITE DISCOLOURATION [None]
  - INJECTION SITE EXTRAVASATION [None]
  - INJECTION SITE ULCER [None]
  - INJECTION SITE VESICLES [None]
  - OEDEMA PERIPHERAL [None]
  - SKIN NECROSIS [None]
